FAERS Safety Report 4504286-4 (Version None)
Quarter: 2004Q4

REPORT INFORMATION
  Report Type: 
  Country: None (occurrence: None)
  Receive Date: 20041118
  Receipt Date: 20041111
  Transmission Date: 20050328
  Serious: Yes (Hospitalization, Other)
  Sender: FDA-Public Use
  Company Number: US-BRISTOL-MYERS SQUIBB COMPANY-12763298

PATIENT
  Age: 72 Year
  Sex: Male
  Weight: 88 kg

DRUGS (2)
  1. CETUXIMAB [Suspect]
     Indication: PANCREATIC CARCINOMA
     Dosage: INITIAL TX DATE:21-SEP-04. PT HAD REC'D 2 COURSES. REMOVED FROM STUDY ON 08-NOV-04.
     Route: 042
     Dates: start: 20041027, end: 20041027
  2. GEMCITABINE [Suspect]
     Indication: PANCREATIC CARCINOMA
     Dosage: INITIAL TX DATE:21-SEP-04. PT HAD REC'D 2 COURSES. REMOVED FROM STUDY ON 08-NOV-04.
     Route: 042
     Dates: start: 20041027, end: 20041027

REACTIONS (10)
  - ABDOMINAL PAIN [None]
  - ATRIAL FIBRILLATION [None]
  - BLOOD BILIRUBIN INCREASED [None]
  - HEPATIC FUNCTION ABNORMAL [None]
  - INFECTION [None]
  - NAUSEA [None]
  - OEDEMA [None]
  - SMALL INTESTINAL OBSTRUCTION [None]
  - THROMBOSIS [None]
  - VOMITING [None]
